FAERS Safety Report 17470729 (Version 1)
Quarter: 2020Q1

REPORT INFORMATION
  Report Type: Spontaneous
  Country: GB (occurrence: GB)
  Receive Date: 20200227
  Receipt Date: 20200227
  Transmission Date: 20200409
  Serious: Yes (Hospitalization)
  Sender: FDA-Public Use
  Company Number: GB-TAKEDA-2020TEU002249

PATIENT
  Age: 72 Year
  Sex: Female

DRUGS (6)
  1. LANSOPRAZOLE. [Suspect]
     Active Substance: LANSOPRAZOLE
     Indication: PRODUCT USED FOR UNKNOWN INDICATION
     Dosage: 30 MILLIGRAM, QD
     Route: 048
     Dates: end: 20200212
  2. TRAMADOL. [Concomitant]
     Active Substance: TRAMADOL
     Dosage: UNK
     Route: 050
  3. METFORMIN [Concomitant]
     Active Substance: METFORMIN HYDROCHLORIDE
     Dosage: 1 GRAM, QD
     Route: 048
  4. DICLOFENAC [Concomitant]
     Active Substance: DICLOFENAC
     Dosage: 1.16 PERCENT, TID
     Route: 061
  5. CLOPIDOGREL [Concomitant]
     Active Substance: CLOPIDOGREL BISULFATE
     Dosage: 75 MILLIGRAM, QD
     Route: 048
  6. ATORVASTATIN [Concomitant]
     Active Substance: ATORVASTATIN
     Dosage: 40 MILLIGRAM, QD
     Route: 048

REACTIONS (3)
  - Hypotension [Recovering/Resolving]
  - Fall [Recovering/Resolving]
  - Hyponatraemia [Recovering/Resolving]

NARRATIVE: CASE EVENT DATE: 20200208
